FAERS Safety Report 4608398-6 (Version None)
Quarter: 2005Q1

REPORT INFORMATION
  Report Type: 
  Country: None (occurrence: None)
  Receive Date: 20050315
  Receipt Date: 20050303
  Transmission Date: 20050727
  Serious: Yes (Hospitalization)
  Sender: FDA-Public Use
  Company Number: JP-JNJFOC-20041103069

PATIENT
  Sex: Female
  Weight: 46 kg

DRUGS (8)
  1. REMICADE [Suspect]
     Dosage: PATIENT RECEIVED 2 INFUSIONS.
     Route: 042
  2. REMICADE [Suspect]
     Indication: CROHN'S DISEASE
     Dosage: FIRST INFUSION
     Route: 042
  3. RABEPRAZOLE SODIUM [Concomitant]
  4. PENTASA [Concomitant]
     Indication: CROHN'S DISEASE
     Route: 049
  5. SALAZOPYRIN [Concomitant]
     Indication: CROHN'S DISEASE
  6. LAC B [Concomitant]
     Route: 049
  7. FOIPAN [Concomitant]
     Route: 049
  8. MAGNESIUM OXIDE [Concomitant]

REACTIONS (25)
  - ABDOMINAL PAIN [None]
  - ALANINE AMINOTRANSFERASE INCREASED [None]
  - ANAL STENOSIS [None]
  - ANAL ULCER [None]
  - ANASTOMOTIC LEAK [None]
  - APHTHOUS STOMATITIS [None]
  - ASPARTATE AMINOTRANSFERASE INCREASED [None]
  - BLOOD AMYLASE ABNORMAL [None]
  - CONDITION AGGRAVATED [None]
  - DRUG INEFFECTIVE [None]
  - ENDOSCOPY LARGE BOWEL ABNORMAL [None]
  - FISTULA [None]
  - GAMMA-GLUTAMYLTRANSFERASE INCREASED [None]
  - HAEMATOCRIT DECREASED [None]
  - HAEMOGLOBIN DECREASED [None]
  - IMPAIRED HEALING [None]
  - INTESTINAL STOMA COMPLICATION [None]
  - INTESTINAL ULCER [None]
  - LARGE INTESTINE PERFORATION [None]
  - PERITONITIS [None]
  - PLATELET COUNT DECREASED [None]
  - PLATELET COUNT INCREASED [None]
  - POST PROCEDURAL COMPLICATION [None]
  - RED BLOOD CELL COUNT DECREASED [None]
  - VOMITING [None]
